FAERS Safety Report 6920008-1 (Version None)
Quarter: 2010Q3

REPORT INFORMATION
  Report Type: 
  Country: None (occurrence: None)
  Receive Date: 20100811
  Receipt Date: 20100802
  Transmission Date: 20110219
  Serious: Yes (Death, Hospitalization, Other)
  Sender: FDA-Public Use
  Company Number: US-PFIZER INC-2010096808

PATIENT
  Age: 71 Year
  Sex: Female

DRUGS (5)
  1. ATORVASTATIN CALCIUM [Suspect]
     Dosage: 20 MG, 1X/DAY
  2. VERAPAMIL HCL [Interacting]
     Indication: HYPERTENSION
     Dosage: 80 MG, 3X/DAY
  3. LISINOPRIL [Concomitant]
  4. INSULIN [Concomitant]
  5. FAMOTIDINE [Concomitant]

REACTIONS (4)
  - DISSEMINATED INTRAVASCULAR COAGULATION [None]
  - DRUG INTERACTION [None]
  - MULTI-ORGAN FAILURE [None]
  - RHABDOMYOLYSIS [None]
